FAERS Safety Report 7336304-2 (Version None)
Quarter: 2011Q1

REPORT INFORMATION
  Report Type: 
  Country: None (occurrence: None)
  Receive Date: 20110307
  Receipt Date: 20110301
  Transmission Date: 20110831
  Serious: Yes (Other)
  Sender: FDA-Public Use
  Company Number: US-PFIZER INC-2011011559

PATIENT
  Sex: Male

DRUGS (2)
  1. VFEND [Suspect]
     Indication: GRANULOMA
  2. VFEND [Suspect]
     Indication: BRAIN ABSCESS
     Dosage: UNK

REACTIONS (4)
  - PERIOSTITIS [None]
  - MYALGIA [None]
  - FLUOROSIS [None]
  - OSTEOSCLEROSIS [None]
